FAERS Safety Report 4296161-8 (Version None)
Quarter: 2004Q1

REPORT INFORMATION
  Report Type: 
  Country: None (occurrence: None)
  Receive Date: 20040217
  Receipt Date: 20030904
  Transmission Date: 20041129
  Serious: No
  Sender: FDA-Public Use
  Company Number: US-GLAXOSMITHKLINE-A0424709A

PATIENT

DRUGS (8)
  1. LAMICTAL [Suspect]
     Indication: BIPOLAR DISORDER
     Dosage: 25MG ALTERNATE DAYS
     Route: 048
     Dates: start: 20030820, end: 20030829
  2. DEPAKOTE [Concomitant]
  3. VIOXX [Concomitant]
  4. VASOTEC [Concomitant]
  5. LIPITOR [Concomitant]
  6. HYDROCHLOROTHIAZIDE [Concomitant]
  7. PEPCID [Concomitant]
  8. MULTIVITAMIN [Concomitant]

REACTIONS (1)
  - RASH ERYTHEMATOUS [None]
